FAERS Safety Report 10217222 (Version 1)
Quarter: 2014Q2

REPORT INFORMATION
  Report Type: Spontaneous
  Country: US (occurrence: US)
  Receive Date: 20140604
  Receipt Date: 20140604
  Transmission Date: 20141212
  Serious: Yes (Other)
  Sender: FDA-Public Use
  Company Number: US-GE HEALTHCARE MEDICAL DIAGNOSTICS-OSCN-PR-1405S-0108

PATIENT
  Age: 30 Year
  Sex: Female

DRUGS (2)
  1. OMNISCAN [Suspect]
     Indication: MIGRAINE
     Route: 042
     Dates: start: 20140522, end: 20140522
  2. OMNISCAN [Suspect]
     Indication: DIAGNOSTIC PROCEDURE

REACTIONS (3)
  - Throat tightness [Recovering/Resolving]
  - Erythema [Recovering/Resolving]
  - Dyspnoea [Recovering/Resolving]
